FAERS Safety Report 6906508-9 (Version None)
Quarter: 2010Q3

REPORT INFORMATION
  Report Type: 
  Country: None (occurrence: None)
  Receive Date: 20100804
  Receipt Date: 20100618
  Transmission Date: 20110219
  Serious: No
  Sender: FDA-Public Use
  Company Number: US-MYLANLABS-2010S1009962

PATIENT
  Age: 54 Year
  Sex: Male
  Weight: 131.54 kg

DRUGS (8)
  1. FELODIPINE [Suspect]
     Indication: BLOOD PRESSURE INCREASED
     Route: 048
     Dates: start: 20100325, end: 20100510
  2. LANSOPRAZOL [Concomitant]
     Route: 048
     Dates: start: 20070101
  3. NADOLOL [Concomitant]
     Route: 048
     Dates: start: 20070101
  4. MICARDIS [Concomitant]
     Route: 048
     Dates: start: 20070101
  5. TERAZOSIN HYDROCHLORIDE [Concomitant]
     Route: 048
     Dates: start: 20070101
  6. CENTRUM SILVER [Concomitant]
  7. BENADRYL [Concomitant]
  8. ALLERGY SHOTS [Concomitant]

REACTIONS (1)
  - HEADACHE [None]
